FAERS Safety Report 9632444 (Version 4)
Quarter: 2014Q2

REPORT INFORMATION
  Report Type: Spontaneous
  Country: CN (occurrence: CN)
  Receive Date: 20131018
  Receipt Date: 20140516
  Transmission Date: 20141212
  Serious: Yes (Hospitalization, Other)
  Sender: FDA-Public Use
  Company Number: PHHY2013CN114830

PATIENT
  Age: 46 Year
  Sex: Male

DRUGS (6)
  1. SEBIVO [Suspect]
     Indication: VIRAL HEPATITIS CARRIER
     Dosage: 0.6 MG
     Route: 048
     Dates: start: 20121226, end: 20130926
  2. SEBIVO [Suspect]
     Indication: CHRONIC HEPATITIS B
  3. BARACLUDE [Suspect]
     Indication: CHRONIC HEPATITIS B
     Dosage: 0.5 MG, QD
     Route: 048
     Dates: start: 20130926, end: 20131008
  4. LAMIVUDINE [Suspect]
     Indication: HEPATITIS B
     Dates: start: 2010
  5. GLUTATHIONE [Suspect]
  6. ADEFOVIR [Concomitant]

REACTIONS (15)
  - Shock [Recovering/Resolving]
  - Respiratory rate increased [Recovering/Resolving]
  - Heart rate increased [Recovering/Resolving]
  - Blood pressure decreased [Recovering/Resolving]
  - Platelet count decreased [Recovering/Resolving]
  - Lactic acidosis [Recovering/Resolving]
  - Renal failure [Recovering/Resolving]
  - Blood creatine phosphokinase increased [Not Recovered/Not Resolved]
  - Myalgia [Recovering/Resolving]
  - Myoglobin blood present [Recovering/Resolving]
  - Hypoaesthesia [Unknown]
  - Muscular weakness [Recovering/Resolving]
  - Alanine aminotransferase increased [Recovering/Resolving]
  - Malaise [Recovering/Resolving]
  - Fatigue [Recovering/Resolving]
